FAERS Safety Report 6082915-4 (Version None)
Quarter: 2009Q1

REPORT INFORMATION
  Report Type: 
  Country: None (occurrence: None)
  Receive Date: 20090218
  Receipt Date: 20090207
  Transmission Date: 20090719
  Serious: Yes (Other)
  Sender: FDA-Public Use
  Company Number: US-PFIZER INC-2008071683

PATIENT
  Sex: Male
  Weight: 95.254 kg

DRUGS (1)
  1. CHANTIX [Suspect]
     Indication: SMOKING CESSATION THERAPY
     Dosage: 5 MG, 1X/DAY
     Dates: start: 20080801, end: 20081001

REACTIONS (1)
  - LUNG NEOPLASM MALIGNANT [None]
